FAERS Safety Report 9322342 (Version 3)
Quarter: 2013Q2

REPORT INFORMATION
  Report Type: Spontaneous
  Country: US (occurrence: US)
  Receive Date: 20130531
  Receipt Date: 20130621
  Transmission Date: 20140414
  Serious: Yes (Death, Hospitalization, Other)
  Sender: FDA-Public Use
  Company Number: US-AMGEN-USASP2013038079

PATIENT
  Age: 94 Year
  Sex: Female
  Weight: 61.68 kg

DRUGS (3)
  1. PROLIA [Suspect]
     Indication: OSTEOPOROSIS POSTMENOPAUSAL
     Dosage: 60 MG, Q6MO
     Route: 058
     Dates: start: 20111005, end: 20121126
  2. PROLIA [Suspect]
  3. PROLIA [Suspect]

REACTIONS (15)
  - Decreased appetite [Fatal]
  - Fluid intake reduced [Fatal]
  - Sepsis [Unknown]
  - Wrist fracture [Recovered/Resolved]
  - Activities of daily living impaired [Unknown]
  - Spinal disorder [Unknown]
  - Chills [Unknown]
  - Pain [Unknown]
  - Fibromyalgia [Unknown]
  - Neck pain [Unknown]
  - Pain [Unknown]
  - Bone density decreased [Unknown]
  - Pneumonia [Unknown]
  - Cystitis [Unknown]
  - Drug hypersensitivity [Unknown]
